FAERS Safety Report 14810624 (Version 2)
Quarter: 2018Q2

REPORT INFORMATION
  Report Type: Report from Study
  Country: US (occurrence: US)
  Receive Date: 20180425
  Receipt Date: 20180607
  Transmission Date: 20180711
  Serious: Yes (Other)
  Sender: FDA-Public Use
  Company Number: US-AMGEN-USASL2018032790

PATIENT
  Age: 79 Year
  Sex: Female

DRUGS (1)
  1. REPATHA [Suspect]
     Active Substance: EVOLOCUMAB
     Indication: HYPERCHOLESTEROLAEMIA
     Dosage: 140 MG, Q2WK
     Route: 065
     Dates: start: 201802

REACTIONS (8)
  - Muscular weakness [Unknown]
  - Cystitis [Unknown]
  - Throat tightness [Unknown]
  - Flank pain [Unknown]
  - Pruritus [Unknown]
  - Dyspnoea [Unknown]
  - Wheezing [Unknown]
  - Back pain [Unknown]

NARRATIVE: CASE EVENT DATE: 2018
